FAERS Safety Report 24193562 (Version 1)
Quarter: 2024Q3

REPORT INFORMATION
  Report Type: Report from Study
  Country: CN (occurrence: CN)
  Receive Date: 20240809
  Receipt Date: 20240809
  Transmission Date: 20241016
  Serious: Yes (Other)
  Sender: RANBAXY
  Company Number: CN-SUN PHARMACEUTICAL INDUSTRIES LTD-2024R1-461139

PATIENT

DRUGS (12)
  1. DOXORUBICIN [Suspect]
     Active Substance: DOXORUBICIN
     Indication: Diffuse large B-cell lymphoma
     Dosage: 10 MILLIGRAM/SQ. METER ON DAY 1-4
     Route: 065
  2. PREDNISONE [Suspect]
     Active Substance: PREDNISONE
     Indication: Diffuse large B-cell lymphoma
     Dosage: 60 MILLIGRAM/SQ. METER, DAILY ON DAY 1-5
     Route: 048
  3. VINCRISTINE [Suspect]
     Active Substance: VINCRISTINE
     Indication: Diffuse large B-cell lymphoma
     Dosage: 0.4 MILLIGRAM/SQ. METER ON DAY 1-4
     Route: 065
  4. CYCLOPHOSPHAMIDE [Suspect]
     Active Substance: CYCLOPHOSPHAMIDE
     Indication: Diffuse large B-cell lymphoma
     Dosage: 750 MILLIGRAM/SQ. METER ON DAY 5
     Route: 065
  5. ETOPOSIDE [Suspect]
     Active Substance: ETOPOSIDE
     Indication: Diffuse large B-cell lymphoma
     Dosage: 50 MILLIGRAM/SQ. METER ON DAY 1-4
     Route: 042
  6. RITUXIMAB [Suspect]
     Active Substance: RITUXIMAB
     Indication: Diffuse large B-cell lymphoma
     Dosage: 375 MILLIGRAM/SQ. METER ON DAY 0 OF CYCLE 1
     Route: 065
  7. RITUXIMAB [Suspect]
     Active Substance: RITUXIMAB
     Dosage: 375 MILLIGRAM/SQ. METER ON DAY 0 OF CYCLE 2-6
     Route: 065
  8. VENETOCLAX [Suspect]
     Active Substance: VENETOCLAX
     Indication: Diffuse large B-cell lymphoma
     Dosage: 20 MILLIGRAM DAY 1
     Route: 048
  9. VENETOCLAX [Suspect]
     Active Substance: VENETOCLAX
     Dosage: 20 MILLIGRAM DAY 2
     Route: 048
  10. VENETOCLAX [Suspect]
     Active Substance: VENETOCLAX
     Dosage: 20 MILLIGRAM DAY 3
     Route: 048
  11. VENETOCLAX [Suspect]
     Active Substance: VENETOCLAX
     Dosage: 20 MILLIGRAM DAY 4
     Route: 048
  12. VENETOCLAX [Suspect]
     Active Substance: VENETOCLAX
     Dosage: 20 MILLIGRAM DAY 5-10
     Route: 048

REACTIONS (4)
  - Anaemia [Unknown]
  - Diarrhoea [Unknown]
  - Neutropenia [Unknown]
  - Thrombocytopenia [Unknown]
